FAERS Safety Report 8890014 (Version 3)
Quarter: 2012Q4

REPORT INFORMATION
  Report Type: 
  Country: US (occurrence: US)
  Receive Date: 20121107
  Receipt Date: 20121217
  Transmission Date: 20130627
  Serious: No
  Sender: FDA-Public Use
  Company Number: US-PFIZER INC-2012273871

PATIENT
  Age: 81 Year
  Sex: Female

DRUGS (7)
  1. MORPHINE SULFATE [Suspect]
     Dosage: UNK
     Route: 030
  2. MORPHINE SULFATE [Suspect]
     Dosage: UNK
     Route: 030
  3. LEVOTHYROXINE [Concomitant]
     Indication: HYPOTHYROIDISM
     Dosage: 25 ug, QD
  4. SINEMET [Concomitant]
     Indication: PARKINSONISM
     Dosage: 25/100 BID
     Dates: start: 201205
  5. NORVASC [Concomitant]
     Indication: HYPERTENSION
     Dosage: 5 mg, UNK
  6. ATENOLOL [Concomitant]
     Indication: HYPERTENSION
     Dosage: 50 mg, QD
  7. ZOLOFT [Concomitant]
     Indication: MAJOR DEPRESSIVE DISORDER NOS
     Dosage: 150 mg, QD

REACTIONS (2)
  - Drug hypersensitivity [Recovered/Resolved]
  - Confusional state [Recovered/Resolved]
